FAERS Safety Report 5235403-9 (Version None)
Quarter: 2007Q1

REPORT INFORMATION
  Report Type: 
  Country: None (occurrence: None)
  Receive Date: 20070212
  Receipt Date: 20070130
  Transmission Date: 20070707
  Serious: Yes (Other)
  Sender: FDA-Public Use
  Company Number: PHEH2007US01024

PATIENT
  Age: 26 Year
  Sex: Male
  Weight: 95.691 kg

DRUGS (1)
  1. EXJADE [Suspect]
     Indication: IRON OVERLOAD
     Dosage: 2500MG, 1-3 TIMES/WEEK
     Route: 048
     Dates: start: 20060101, end: 20070101

REACTIONS (7)
  - ALANINE AMINOTRANSFERASE INCREASED [None]
  - ASPARTATE AMINOTRANSFERASE INCREASED [None]
  - BLOOD BILIRUBIN INCREASED [None]
  - BLOOD BILIRUBIN UNCONJUGATED INCREASED [None]
  - HAEMOGLOBIN DECREASED [None]
  - HEPATITIS [None]
  - WHITE BLOOD CELL DISORDER [None]
